FAERS Safety Report 7249701-0 (Version None)
Quarter: 2011Q1

REPORT INFORMATION
  Report Type: 
  Country: None (occurrence: None)
  Receive Date: 20110128
  Receipt Date: 20110119
  Transmission Date: 20110831
  Serious: Yes (Hospitalization)
  Sender: FDA-Public Use
  Company Number: CA-JNJFOC-20110105615

PATIENT
  Sex: Male
  Weight: 95 kg

DRUGS (5)
  1. REMICADE [Suspect]
     Route: 042
  2. ASA [Concomitant]
     Route: 048
  3. FOLIC ACID [Concomitant]
     Route: 065
  4. REMICADE [Suspect]
     Indication: ARTHRITIS REACTIVE
     Route: 042
  5. METHOTREXATE [Concomitant]
     Dosage: 3 TABS PER WEEK.

REACTIONS (1)
  - NEPHROLITHIASIS [None]
